FAERS Safety Report 5587652-8 (Version None)
Quarter: 2008Q1

REPORT INFORMATION
  Report Type: 
  Country: None (occurrence: None)
  Receive Date: 20080108
  Receipt Date: 20080102
  Transmission Date: 20080703
  Serious: Yes (Death)
  Sender: FDA-Public Use
  Company Number: 163-21880-08010068

PATIENT
  Age: 62 Year
  Sex: Female

DRUGS (2)
  1. REVLIMID [Suspect]
     Indication: MULTIPLE MYELOMA
     Dosage: 20 MG, 2 IN 1 D, ORAL; 15 MG, 1 IN 1 D, ORAL
     Route: 048
     Dates: start: 20060929, end: 20061101
  2. REVLIMID [Suspect]
     Indication: MULTIPLE MYELOMA
     Dosage: 20 MG, 2 IN 1 D, ORAL; 15 MG, 1 IN 1 D, ORAL
     Route: 048
     Dates: start: 20061127, end: 20071107

REACTIONS (1)
  - DEATH [None]
